FAERS Safety Report 8772714 (Version 2)
Quarter: 2012Q4

REPORT INFORMATION
  Report Type: 
  Country: FR (occurrence: FR)
  Receive Date: 20120905
  Receipt Date: 20120907
  Transmission Date: 20130627
  Serious: Yes (Hospitalization)
  Sender: FDA-Public Use
  Company Number: FR-PFIZER INC-2012214625

PATIENT
  Age: 85 Year
  Sex: Female

DRUGS (8)
  1. ALDACTONE [Suspect]
     Indication: HYPERTENSION
     Dosage: 25 mg, 1x/day
     Route: 048
     Dates: start: 201109, end: 20120710
  2. DUROGESIC [Concomitant]
     Indication: PAIN
     Dosage: UNK
     Route: 062
  3. RIVOTRIL [Concomitant]
     Dosage: UNK
     Route: 048
     Dates: end: 20120710
  4. LASILIX [Concomitant]
     Indication: HYPERTENSION
     Dosage: 40 mg, UNK
     Route: 048
  5. DIGOXIN ^NATIVELLE^ [Concomitant]
     Indication: ARRHYTHMIA
     Route: 048
  6. TRANSIPEG [Concomitant]
     Indication: CONSTIPATION
     Route: 048
  7. MICROLAX [Concomitant]
     Indication: CONSTIPATION
     Route: 054
  8. DOLIPRANE [Concomitant]
     Indication: PAIN
     Dosage: 500 mg, 4x/day
     Route: 048

REACTIONS (1)
  - Muscle spasms [Recovered/Resolved]
